FAERS Safety Report 9915064 (Version 1)
Quarter: 2014Q1

REPORT INFORMATION
  Report Type: Report from Study
  Country: US (occurrence: US)
  Receive Date: 20140220
  Receipt Date: 20140220
  Transmission Date: 20141002
  Serious: Yes (Other)
  Sender: FDA-Public Use
  Company Number: US-ABBVIE-14P-163-1201602-00

PATIENT
  Sex: Female
  Weight: 104.42 kg

DRUGS (29)
  1. HUMIRA [Suspect]
     Indication: PSORIATIC ARTHROPATHY
  2. HUMIRA [Suspect]
  3. METHOTREXATE [Concomitant]
     Indication: PSORIATIC ARTHROPATHY
  4. MS CONTIN [Concomitant]
     Indication: PAIN
  5. DIALUDID [Concomitant]
     Indication: PAIN
  6. HYDROXYCHLOROQUINE [Concomitant]
     Indication: PRODUCT USED FOR UNKNOWN INDICATION
  7. FOLIC ACID [Concomitant]
     Indication: PRODUCT USED FOR UNKNOWN INDICATION
  8. METOPROLOL SUCCINATE [Concomitant]
     Indication: HYPERTENSION
  9. PROAIR HFA [Concomitant]
     Indication: DYSPNOEA
  10. PROAIR HFA [Concomitant]
     Indication: WHEEZING
  11. MULTIVITAMIN [Concomitant]
     Indication: VITAMIN SUPPLEMENTATION
  12. CALCIUM [Concomitant]
     Indication: CALCIUM DEFICIENCY
  13. SYMBICORT [Concomitant]
     Indication: WHEEZING
  14. IMITREX [Concomitant]
     Indication: HEADACHE
  15. VITAMIN D3 [Concomitant]
     Indication: PRODUCT USED FOR UNKNOWN INDICATION
  16. VISTARIL [Concomitant]
     Indication: PRURITUS
  17. VISTARIL [Concomitant]
     Indication: SKIN DISORDER
  18. DIAZEPAM [Concomitant]
     Indication: MENIERE^S DISEASE
  19. IRON [Concomitant]
     Indication: PRODUCT USED FOR UNKNOWN INDICATION
  20. VASOTEC [Concomitant]
     Indication: PRODUCT USED FOR UNKNOWN INDICATION
  21. HYDROCHLOROTHIAZIDE [Concomitant]
     Indication: PRODUCT USED FOR UNKNOWN INDICATION
  22. VERAPAMIL [Concomitant]
     Indication: PRODUCT USED FOR UNKNOWN INDICATION
  23. CYMBALTA [Concomitant]
     Indication: PRODUCT USED FOR UNKNOWN INDICATION
  24. SULFASALAZINE [Concomitant]
     Indication: PRODUCT USED FOR UNKNOWN INDICATION
  25. MELOXICAM [Concomitant]
     Indication: PRODUCT USED FOR UNKNOWN INDICATION
  26. CYANOCOBALAMIN [Concomitant]
     Indication: PRODUCT USED FOR UNKNOWN INDICATION
  27. ZOLPIDEM TARTRATE [Concomitant]
     Indication: INSOMNIA
  28. NYSTATIN [Concomitant]
     Indication: CANDIDA INFECTION
  29. BACTRIM [Concomitant]
     Indication: PRODUCT USED FOR UNKNOWN INDICATION

REACTIONS (11)
  - Arthropathy [Recovered/Resolved]
  - Bone disorder [Recovered/Resolved]
  - Skin ulcer [Recovering/Resolving]
  - Impaired healing [Recovering/Resolving]
  - Perforated ulcer [Unknown]
  - Nasopharyngitis [Unknown]
  - Influenza [Unknown]
  - Disability [Not Recovered/Not Resolved]
  - Arthritis [Not Recovered/Not Resolved]
  - Cellulitis [Recovered/Resolved]
  - Skin ulcer [Recovering/Resolving]
